FAERS Safety Report 10152208 (Version 1)
Quarter: 2014Q2

REPORT INFORMATION
  Report Type: Spontaneous
  Country: US (occurrence: None)
  Receive Date: 20140502
  Receipt Date: 20140502
  Transmission Date: 20141212
  Serious: Yes (Disabling)
  Sender: FDA-Public Use
  Company Number: None

PATIENT
  Age: 61 Year
  Sex: Female
  Weight: 72.58 kg

DRUGS (2)
  1. PRAVASTATIN [Suspect]
     Indication: BLOOD CHOLESTEROL INCREASED
     Route: 048
     Dates: start: 20140217, end: 20140429
  2. LEVTHYROXINE [Suspect]
     Indication: HYPOTHYROIDISM
     Dates: start: 20070601, end: 20130322

REACTIONS (15)
  - Arthralgia [None]
  - Myalgia [None]
  - Back pain [None]
  - Pulmonary pain [None]
  - Respiratory tract infection [None]
  - Cough [None]
  - Tinnitus [None]
  - Confusional state [None]
  - Disturbance in attention [None]
  - Headache [None]
  - Facial pain [None]
  - Swelling face [None]
  - Eye pain [None]
  - Ear pain [None]
  - Product substitution issue [None]
